FAERS Safety Report 5285780-8 (Version None)
Quarter: 2007Q1

REPORT INFORMATION
  Report Type: 
  Country: None (occurrence: None)
  Receive Date: 20070126
  Receipt Date: 20061114
  Transmission Date: 20070707
  Serious: No
  Sender: FDA-Public Use
  Company Number: 2006CT000999

PATIENT
  Age: 66 Year
  Sex: Female
  Weight: 51 kg

DRUGS (12)
  1. VENTAVIS [Suspect]
     Indication: PULMONARY HYPERTENSION
     Dosage: 5 UG;6XD;INH
     Route: 055
     Dates: start: 20061108
  2. PLAQUENIL [Concomitant]
  3. LASIX [Concomitant]
  4. ASPIRIN [Concomitant]
  5. ACTONEL [Concomitant]
  6. BETOPTIC [Concomitant]
  7. K-DUR 10 [Concomitant]
  8. CELEBREX [Concomitant]
  9. ALLOPURINOL [Concomitant]
  10. WARFARIN SODIUM [Concomitant]
  11. PREDNISONE [Concomitant]
  12. TRACLEER [Concomitant]

REACTIONS (3)
  - CHEST DISCOMFORT [None]
  - DYSPNOEA [None]
  - FATIGUE [None]
